FAERS Safety Report 6893044-1 (Version None)
Quarter: 2010Q3

REPORT INFORMATION
  Report Type: 
  Country: None (occurrence: None)
  Receive Date: 20100731
  Receipt Date: 20090315
  Transmission Date: 20110219
  Serious: No
  Sender: FDA-Public Use
  Company Number: US-PFIZER INC-2008058253

PATIENT
  Sex: Male
  Weight: 90.9 kg

DRUGS (7)
  1. NEURONTIN [Suspect]
     Dosage: 600 MG, 3X/DAY
     Dates: start: 20080301, end: 20080601
  2. XANAX [Concomitant]
  3. SOMA [Concomitant]
  4. VICODIN [Concomitant]
  5. TYLENOL W/ CODEINE [Concomitant]
  6. VITAMIN B-12 [Concomitant]
  7. DRUG, UNSPECIFIED [Concomitant]

REACTIONS (12)
  - ALCOHOLISM [None]
  - BALANCE DISORDER [None]
  - CHRONIC OBSTRUCTIVE PULMONARY DISEASE [None]
  - DRUG EFFECT DECREASED [None]
  - DYSGEUSIA [None]
  - DYSSTASIA [None]
  - FEELING ABNORMAL [None]
  - FEELING DRUNK [None]
  - IMPAIRED DRIVING ABILITY [None]
  - INSOMNIA [None]
  - SCIATICA [None]
  - SOMNOLENCE [None]
